FAERS Safety Report 9343406 (Version 1)
Quarter: 2013Q2

REPORT INFORMATION
  Report Type: Spontaneous
  Country: US (occurrence: US)
  Receive Date: 20130612
  Receipt Date: 20130612
  Transmission Date: 20140414
  Serious: Yes (Hospitalization)
  Sender: FDA-Public Use
  Company Number: US-BIOGENIDEC-2013BI051420

PATIENT
  Age: 64 Year
  Sex: Female

DRUGS (17)
  1. TECFIDERA [Suspect]
     Indication: MULTIPLE SCLEROSIS
     Route: 048
     Dates: start: 20130522
  2. TECFIDERA [Suspect]
     Indication: MULTIPLE SCLEROSIS
     Route: 048
     Dates: start: 20130522
  3. CYMBALTA [Concomitant]
  4. ZYPREXA [Concomitant]
  5. KLONOPIN [Concomitant]
  6. CENTRUM [Concomitant]
  7. AMBIEN [Concomitant]
  8. RITALIN [Concomitant]
  9. FENTANYL [Concomitant]
  10. LAMICTAL [Concomitant]
  11. CLONIDINE HCL [Concomitant]
  12. DICLOFENAC SOD EC [Concomitant]
  13. MICARDIS [Concomitant]
  14. SM VITAMIN B12 [Concomitant]
  15. CALCIUM + VITAMIN D [Concomitant]
  16. VITAMIN D3 [Concomitant]
  17. VITAMIN C [Concomitant]

REACTIONS (1)
  - Plasmapheresis [Unknown]
